FAERS Safety Report 20039649 (Version 1)
Quarter: 2021Q4

REPORT INFORMATION
  Report Type: Spontaneous
  Country: US (occurrence: US)
  Receive Date: 20211106
  Receipt Date: 20211106
  Transmission Date: 20220303
  Serious: Yes (Other)
  Sender: FDA-Public Use
  Company Number: US-Shilpa Medicare Limited-SML-US-2021-01275

PATIENT
  Age: 82 Year
  Sex: Male

DRUGS (6)
  1. IRINOTECAN [Suspect]
     Active Substance: IRINOTECAN
     Indication: Neuroendocrine carcinoma
  2. IRINOTECAN [Suspect]
     Active Substance: IRINOTECAN
     Indication: Transitional cell carcinoma
  3. DOCETAXEL [Suspect]
     Active Substance: DOCETAXEL
     Indication: Neuroendocrine carcinoma
  4. DOCETAXEL [Suspect]
     Active Substance: DOCETAXEL
     Indication: Transitional cell carcinoma
  5. PEMBROLIZUMAB [Suspect]
     Active Substance: PEMBROLIZUMAB
     Indication: Neuroendocrine carcinoma
  6. PEMBROLIZUMAB [Suspect]
     Active Substance: PEMBROLIZUMAB
     Indication: Transitional cell carcinoma

REACTIONS (2)
  - Disease progression [Unknown]
  - Drug ineffective [Unknown]
